FAERS Safety Report 6075950-3 (Version None)
Quarter: 2009Q1

REPORT INFORMATION
  Report Type: 
  Country: None (occurrence: None)
  Receive Date: 20090212
  Receipt Date: 20090205
  Transmission Date: 20090719
  Serious: Yes (Life-Threatening, Hospitalization)
  Sender: FDA-Public Use
  Company Number: US-BRISTOL-MYERS SQUIBB COMPANY-12423612

PATIENT
  Age: 59 Year
  Sex: Female
  Weight: 100 kg

DRUGS (13)
  1. ABILIFY [Suspect]
     Indication: DELUSION
     Route: 048
     Dates: start: 20030901, end: 20030919
  2. ABILIFY [Suspect]
     Indication: SCHIZOPHRENIA
     Route: 048
     Dates: start: 20030901, end: 20030919
  3. RISPERDAL [Suspect]
  4. NORVASC [Concomitant]
  5. COUMADIN [Concomitant]
  6. POTASSIUM CHLORIDE [Concomitant]
  7. LASIX [Concomitant]
  8. GLIPIZIDE [Concomitant]
  9. PROZAC [Concomitant]
  10. COREG [Concomitant]
  11. ATIVAN [Concomitant]
  12. DILANTIN [Concomitant]
  13. PROPOFOL [Concomitant]

REACTIONS (5)
  - CONVULSION [None]
  - ELECTROCARDIOGRAM QT PROLONGED [None]
  - EMBOLIC STROKE [None]
  - RESPIRATORY ACIDOSIS [None]
  - TORSADE DE POINTES [None]
